FAERS Safety Report 6875970-2 (Version None)
Quarter: 2010Q3

REPORT INFORMATION
  Report Type: 
  Country: None (occurrence: None)
  Receive Date: 20100727
  Receipt Date: 20100713
  Transmission Date: 20110219
  Serious: Yes (Other)
  Sender: FDA-Public Use
  Company Number: PHHY2010CA44564

PATIENT
  Sex: Female

DRUGS (6)
  1. ACLASTA [Suspect]
     Indication: OSTEOPOROSIS
     Dosage: 5 MG
     Route: 042
     Dates: start: 20090902
  2. LIPITOR [Concomitant]
  3. VITAMIN B-12 [Concomitant]
  4. MAGNESIUM [Concomitant]
  5. ASPIRIN [Concomitant]
  6. SYNTHROID [Concomitant]

REACTIONS (5)
  - CELLULITIS [None]
  - EAR INFECTION [None]
  - INFECTION [None]
  - MALAISE [None]
  - SCRATCH [None]
